FAERS Safety Report 9844855 (Version 1)
Quarter: 2014Q1

REPORT INFORMATION
  Report Type: Spontaneous
  Country: US (occurrence: None)
  Receive Date: 20140123
  Receipt Date: 20140123
  Transmission Date: 20141002
  Serious: No
  Sender: FDA-Public Use
  Company Number: None

PATIENT
  Age: 52 Year
  Sex: Female
  Weight: 67.13 kg

DRUGS (1)
  1. SINGULAR [Suspect]
     Indication: MULTIPLE ALLERGIES
     Dosage: 10?ONCE DAILY?TAKEN BY MOUTH
     Route: 048

REACTIONS (1)
  - Blood triglycerides increased [None]
